FAERS Safety Report 14048209 (Version 1)
Quarter: 2017Q4

REPORT INFORMATION
  Report Type: Spontaneous
  Country: US (occurrence: US)
  Receive Date: 20171005
  Receipt Date: 20171005
  Transmission Date: 20180321
  Serious: Yes (Other)
  Sender: FDA-Public Use
  Company Number: US-SA-2017SA181299

PATIENT
  Sex: Female

DRUGS (1)
  1. LANTUS [Suspect]
     Active Substance: INSULIN GLARGINE
     Indication: TYPE 2 DIABETES MELLITUS
     Dosage: DOSE IS- 19UNITS AM AND  37UNITS PM
     Route: 051
     Dates: start: 2007

REACTIONS (3)
  - Tracheostomy [Unknown]
  - Product use issue [Unknown]
  - Stress [Unknown]
